FAERS Safety Report 6282839-3 (Version None)
Quarter: 2009Q3

REPORT INFORMATION
  Report Type: 
  Country: None (occurrence: None)
  Receive Date: 20090715
  Receipt Date: 20090702
  Transmission Date: 20100115
  Serious: No
  Sender: FDA-Public Use
  Company Number: US-144829

PATIENT
  Sex: Female

DRUGS (4)
  1. WINRHO [Suspect]
     Indication: IDIOPATHIC THROMBOCYTOPENIC PURPURA
     Dosage: (5000 UG QD INTRAVENOUS
     Route: 042
     Dates: start: 20090605, end: 20090605
  2. INDERAL [Concomitant]
  3. BENADRYL [Concomitant]
  4. AMERGE [Concomitant]

REACTIONS (10)
  - BLOOD BILIRUBIN INCREASED [None]
  - CHILLS [None]
  - CHROMATURIA [None]
  - COOMBS TEST POSITIVE [None]
  - FATIGUE [None]
  - HAEMATOCRIT DECREASED [None]
  - HAEMOGLOBIN DECREASED [None]
  - HEPATIC ENZYME INCREASED [None]
  - PYREXIA [None]
  - TREMOR [None]
